FAERS Safety Report 7799668-1 (Version None)
Quarter: 2011Q4

REPORT INFORMATION
  Report Type: 
  Country: None (occurrence: None)
  Receive Date: 20111006
  Receipt Date: 20110928
  Transmission Date: 20120403
  Serious: Yes (Hospitalization)
  Sender: FDA-Public Use
  Company Number: JP-BAYER-2011-020341

PATIENT
  Age: 76 Year
  Sex: Male
  Weight: 57 kg

DRUGS (17)
  1. SORAFENIB (RAF KINASE INHIBITOR) [Suspect]
     Dosage: 400 MG, QD
     Route: 048
     Dates: start: 20101109, end: 20110301
  2. GRIMAC [Concomitant]
     Dosage: 1.5 G, QD
     Route: 048
  3. TS-1/ PLACEBO [Concomitant]
     Indication: HEPATIC NEOPLASM MALIGNANT
     Dosage: 120 MG, QD
     Route: 048
     Dates: start: 20100810, end: 20101019
  4. SORAFENIB (RAF KINASE INHIBITOR) [Suspect]
     Dosage: 400 MG, QD
     Route: 048
     Dates: start: 20100409, end: 20100608
  5. NIVADIL [Concomitant]
     Dosage: 2 MG, QD
     Route: 048
  6. OVULANZE TAIYO [Concomitant]
     Dosage: DAILY DOSE 10 MG
     Route: 048
  7. SORAFENIB (RAF KINASE INHIBITOR) [Suspect]
     Dosage: 800 MG, QD
     Route: 048
     Dates: start: 20100609, end: 20100713
  8. SORAFENIB (RAF KINASE INHIBITOR) [Suspect]
     Dosage: UNK
     Route: 048
     Dates: start: 20110309, end: 20110601
  9. PLETAL [Concomitant]
     Dosage: 200 MG, QD
     Route: 048
  10. DEPAS [Concomitant]
     Dosage: 0.5 MG, QD
     Route: 048
  11. BIFIDOBACTERIUM BIFIDUM [Concomitant]
     Dosage: DAILY DOSE 3 G
     Route: 048
     Dates: start: 20110215, end: 20110703
  12. UREPEARL [Concomitant]
     Indication: PALMAR-PLANTAR ERYTHRODYSAESTHESIA SYNDROME
  13. ASPIRIN [Concomitant]
     Dosage: 100 MG, QD
     Route: 048
  14. TRILAFON [Concomitant]
     Dosage: 2 MG, QD
     Route: 048
  15. UREPEARL [Concomitant]
     Indication: RASH
     Dosage: UNK
     Route: 061
     Dates: start: 20100324
  16. SORAFENIB (RAF KINASE INHIBITOR) [Suspect]
     Indication: HEPATIC NEOPLASM MALIGNANT
     Dosage: 800 MG, QD
     Route: 048
     Dates: start: 20100323
  17. SORAFENIB (RAF KINASE INHIBITOR) [Suspect]
     Dosage: UNK
     Dates: start: 20110601

REACTIONS (8)
  - C-REACTIVE PROTEIN INCREASED [None]
  - DIARRHOEA [None]
  - STOMATITIS [None]
  - RASH [None]
  - PALMAR-PLANTAR ERYTHRODYSAESTHESIA SYNDROME [None]
  - PYREXIA [None]
  - HYPOGLYCAEMIA [None]
  - ECZEMA [None]
